FAERS Safety Report 15230557 (Version 1)
Quarter: 2018Q3

REPORT INFORMATION
  Report Type: Spontaneous
  Country: US (occurrence: US)
  Receive Date: 20180802
  Receipt Date: 20180802
  Transmission Date: 20181010
  Serious: No
  Sender: FDA-Public Use
  Company Number: US-DRREDDYS-USA/USA/17/0094790

PATIENT
  Sex: Female
  Weight: 72.7 kg

DRUGS (7)
  1. OMEPRAZOLE MAGNESIUM DELAYED RELEASE OTC [Suspect]
     Active Substance: OMEPRAZOLE MAGNESIUM
     Indication: ABDOMINAL DISCOMFORT
  2. LEVOTHYROXINE. [Concomitant]
     Active Substance: LEVOTHYROXINE
     Indication: HYPOTHYROIDISM
     Route: 065
  3. SPIRONOLACTONE. [Concomitant]
     Active Substance: SPIRONOLACTONE
     Indication: PRODUCT USED FOR UNKNOWN INDICATION
     Route: 065
  4. OMEPRAZOLE MAGNESIUM DELAYED RELEASE OTC [Suspect]
     Active Substance: OMEPRAZOLE MAGNESIUM
     Indication: GASTROOESOPHAGEAL REFLUX DISEASE
  5. TAGAMET [Concomitant]
     Active Substance: CIMETIDINE
     Indication: BACTERIAL INFECTION
     Route: 065
  6. OMEPRAZOLE MAGNESIUM DELAYED RELEASE OTC [Suspect]
     Active Substance: OMEPRAZOLE MAGNESIUM
     Indication: BACTERIAL INFECTION
     Route: 048
     Dates: start: 201708
  7. PEPTO?BISMOL [Concomitant]
     Active Substance: BISMUTH SUBSALICYLATE
     Indication: GASTRIC DISORDER
     Route: 065

REACTIONS (6)
  - Drug ineffective [Unknown]
  - Weight decreased [Recovering/Resolving]
  - Incorrect drug administration duration [Unknown]
  - Product quality issue [Unknown]
  - Malabsorption [Not Recovered/Not Resolved]
  - Product use in unapproved indication [Unknown]
